FAERS Safety Report 16889970 (Version 1)
Quarter: 2019Q4

REPORT INFORMATION
  Report Type: Spontaneous
  Country: US (occurrence: US)
  Receive Date: 20190812
  Receipt Date: 20190812
  Transmission Date: 20200122
  Serious: Yes (Hospitalization)
  Sender: FDA-Public Use
  Company Number: None

PATIENT
  Age: 77 Year
  Sex: Male
  Weight: 89 kg

DRUGS (1)
  1. GABAPENTIN. [Suspect]
     Active Substance: GABAPENTIN
     Indication: PAIN
     Route: 048
     Dates: start: 20190128, end: 20190411

REACTIONS (5)
  - Gait inability [None]
  - Agitation [None]
  - Seizure [None]
  - Sedation [None]
  - Confusional state [None]

NARRATIVE: CASE EVENT DATE: 20190411
